FAERS Safety Report 5615538-9 (Version None)
Quarter: 2008Q1

REPORT INFORMATION
  Report Type: 
  Country: None (occurrence: None)
  Receive Date: 20080204
  Receipt Date: 20080204
  Transmission Date: 20080703
  Serious: Yes (Other)
  Sender: FDA-Public Use
  Company Number: None

PATIENT
  Age: 30 Year
  Sex: Female
  Weight: 97.5234 kg

DRUGS (1)
  1. PRO:AIR 8.5 G NET CONTENTS IVAX PHARMACEUTICALS [Suspect]
     Indication: ASTHMA
     Dosage: 2 PUFFS AS NEEDED PO
     Route: 048
     Dates: start: 20070715

REACTIONS (4)
  - BRONCHITIS [None]
  - DEVICE FAILURE [None]
  - DRUG INEFFECTIVE [None]
  - PHARMACEUTICAL PRODUCT COMPLAINT [None]
